FAERS Safety Report 8098707-0 (Version None)
Quarter: 2012Q1

REPORT INFORMATION
  Report Type: 
  Country: None (occurrence: None)
  Receive Date: 20120131
  Receipt Date: 20120121
  Transmission Date: 20120608
  Serious: Yes (Other)
  Sender: FDA-Public Use
  Company Number: CHPA2012US001879

PATIENT
  Sex: Male

DRUGS (1)
  1. GAS-X UNKNOWN FORMULA [Suspect]
     Dosage: UNK DF, UNK
     Route: 048

REACTIONS (6)
  - FLATULENCE [None]
  - GAIT DISTURBANCE [None]
  - FAECES HARD [None]
  - CONFUSIONAL STATE [None]
  - DISORIENTATION [None]
  - VOMITING [None]
